FAERS Safety Report 5517715-4 (Version None)
Quarter: 2007Q4

REPORT INFORMATION
  Report Type: 
  Country: None (occurrence: None)
  Receive Date: 20071113
  Receipt Date: 20071030
  Transmission Date: 20080405
  Serious: Yes (Other)
  Sender: FDA-Public Use
  Company Number: US021446

PATIENT
  Age: 24 Year
  Sex: Female

DRUGS (5)
  1. PROVIGIL [Suspect]
     Indication: FATIGUE
     Dosage: 200 MD BID ORAL
     Route: 048
     Dates: start: 20070701
  2. COPAXONE [Concomitant]
  3. IBUPROFEN TABLETS [Concomitant]
  4. CALTRATE [Concomitant]
  5. XANAX [Concomitant]

REACTIONS (5)
  - DECREASED APPETITE [None]
  - DYSARTHRIA [None]
  - HEADACHE [None]
  - MULTIPLE SCLEROSIS [None]
  - WEIGHT DECREASED [None]
